FAERS Safety Report 22541098 (Version 1)
Quarter: 2023Q2

REPORT INFORMATION
  Report Type: Spontaneous
  Country: FI (occurrence: FI)
  Receive Date: 20230609
  Receipt Date: 20230609
  Transmission Date: 20230721
  Serious: Yes (Other)
  Sender: FDA-Public Use
  Company Number: FI-AMGEN-FINSP2023097978

PATIENT
  Age: 31 Year
  Sex: Male
  Weight: 80 kg

DRUGS (4)
  1. ADALIMUMAB [Suspect]
     Active Substance: ADALIMUMAB
     Indication: Product used for unknown indication
     Dosage: UNK
     Route: 058
     Dates: start: 2016, end: 2021
  2. ETANERCEPT [Suspect]
     Active Substance: ETANERCEPT
     Indication: Product used for unknown indication
     Dosage: UNK
     Route: 065
  3. GOLIMUMAB [Concomitant]
     Active Substance: GOLIMUMAB
     Indication: Product used for unknown indication
     Dosage: UNK
  4. SECUKINUMAB [Concomitant]
     Active Substance: SECUKINUMAB
     Indication: Product used for unknown indication
     Dosage: UNK

REACTIONS (13)
  - Hepatitis [Unknown]
  - Therapeutic product effect decreased [Unknown]
  - Fibrosis [Unknown]
  - Body mass index increased [Not Recovered/Not Resolved]
  - Enthesopathy [Unknown]
  - Tenosynovitis [Unknown]
  - Skin disorder [Unknown]
  - Immunisation [Unknown]
  - Skin disorder [Unknown]
  - Arthropathy [Unknown]
  - Hepatic steatosis [Unknown]
  - Weight increased [Not Recovered/Not Resolved]
  - Alanine aminotransferase increased [Unknown]

NARRATIVE: CASE EVENT DATE: 20210101
